FAERS Safety Report 24653338 (Version 3)
Quarter: 2025Q1

REPORT INFORMATION
  Report Type: Report from Study
  Country: GB (occurrence: GB)
  Receive Date: 20241122
  Receipt Date: 20250217
  Transmission Date: 20250409
  Serious: Yes (Other)
  Sender: NOVARTIS
  Company Number: GB-002147023-NVSC2024GB223759

PATIENT
  Age: 41 Year
  Sex: Female

DRUGS (3)
  1. KESIMPTA [Suspect]
     Active Substance: OFATUMUMAB
     Indication: Relapsing-remitting multiple sclerosis
     Dosage: 1 DOSAGE FORM, QW (LOADING DOSES)
     Route: 058
     Dates: start: 20241111
  2. KESIMPTA [Suspect]
     Active Substance: OFATUMUMAB
     Route: 058
  3. KESIMPTA [Suspect]
     Active Substance: OFATUMUMAB
     Dosage: 20 MG, QMO
     Route: 058

REACTIONS (14)
  - Multiple sclerosis [Unknown]
  - Influenza like illness [Recovered/Resolved with Sequelae]
  - Pain [Unknown]
  - Fatigue [Unknown]
  - Headache [Unknown]
  - Hot flush [Unknown]
  - Oropharyngeal pain [Unknown]
  - Malaise [Not Recovered/Not Resolved]
  - Somnolence [Unknown]
  - Eating disorder [Unknown]
  - Temperature regulation disorder [Unknown]
  - Feeling abnormal [Unknown]
  - Nervousness [Unknown]
  - Viral infection [Unknown]
